FAERS Safety Report 6362809-7 (Version None)
Quarter: 2009Q3

REPORT INFORMATION
  Report Type: 
  Country: None (occurrence: None)
  Receive Date: 20090919
  Receipt Date: 20090611
  Transmission Date: 20100115
  Serious: No
  Sender: FDA-Public Use
  Company Number: US-ABBOTT-09P-163-0579294-00

PATIENT
  Sex: Male

DRUGS (4)
  1. HUMIRA [Suspect]
     Indication: CROHN'S DISEASE
     Dates: start: 20090519, end: 20090519
  2. HUMIRA [Suspect]
     Dates: start: 20090520, end: 20090520
  3. HUMIRA [Suspect]
     Dates: start: 20090609, end: 20090609
  4. HUMIRA [Suspect]
     Dates: start: 20090623

REACTIONS (1)
  - INCORRECT DOSE ADMINISTERED [None]
